FAERS Safety Report 21627554 (Version 2)
Quarter: 2023Q2

REPORT INFORMATION
  Report Type: Spontaneous
  Country: US (occurrence: US)
  Receive Date: 20221122
  Receipt Date: 20230412
  Transmission Date: 20230721
  Serious: No
  Sender: FDA-Public Use
  Company Number: US-GLENMARK PHARMACEUTICALS-2022GMK075488

PATIENT

DRUGS (1)
  1. CLOBETASOL PROPIONATE [Suspect]
     Active Substance: CLOBETASOL PROPIONATE
     Indication: Prophylaxis
     Dosage: PRESCRIBED WERE TO APPLY ON SCALP AT NIGHT AND WASH IT OUT THE NEXT MORNING, HS
     Route: 061
     Dates: start: 20220923

REACTIONS (3)
  - Seborrhoea [Recovered/Resolved]
  - Wrong dosage formulation [Unknown]
  - Product quality issue [Unknown]

NARRATIVE: CASE EVENT DATE: 20220924
